FAERS Safety Report 25788052 (Version 1)
Quarter: 2025Q3

REPORT INFORMATION
  Report Type: Spontaneous
  Country: ID (occurrence: ID)
  Receive Date: 20250910
  Receipt Date: 20250910
  Transmission Date: 20251020
  Serious: Yes (Other)
  Sender: NOVARTIS
  Company Number: ID-002147023-NVSC2025ID136733

PATIENT

DRUGS (1)
  1. RIBOCICLIB [Suspect]
     Active Substance: RIBOCICLIB
     Indication: Product used for unknown indication
     Route: 065

REACTIONS (2)
  - Hepatic mass [Unknown]
  - Gene mutation identification test positive [Unknown]
